FAERS Safety Report 9440997 (Version 4)
Quarter: 2014Q4

REPORT INFORMATION
  Report Type: Spontaneous
  Country: US (occurrence: US)
  Receive Date: 20130805
  Receipt Date: 20141218
  Transmission Date: 20150529
  Serious: Yes (Other)
  Sender: FDA-Public Use
  Company Number: US-AMGEN-USASP2013053507

PATIENT
  Age: 68 Year
  Sex: Female
  Weight: 73.47 kg

DRUGS (2)
  1. ENBREL [Suspect]
     Active Substance: ETANERCEPT
     Indication: ANKYLOSING SPONDYLITIS
     Dosage: 50 MG, QWK
     Route: 058
     Dates: start: 1999
  2. ENBREL [Suspect]
     Active Substance: ETANERCEPT
     Dosage: UNK
     Route: 058

REACTIONS (9)
  - Meniscus injury [Not Recovered/Not Resolved]
  - Rotator cuff syndrome [Not Recovered/Not Resolved]
  - Ligament rupture [Not Recovered/Not Resolved]
  - Head titubation [Not Recovered/Not Resolved]
  - Synovial rupture [Not Recovered/Not Resolved]
  - Gait disturbance [Not Recovered/Not Resolved]
  - Skin striae [Not Recovered/Not Resolved]
  - Iritis [Not Recovered/Not Resolved]
  - Exostosis [Not Recovered/Not Resolved]

NARRATIVE: CASE EVENT DATE: 201303
